FAERS Safety Report 10484464 (Version 1)
Quarter: 2014Q3

REPORT INFORMATION
  Report Type: Spontaneous
  Country: US (occurrence: US)
  Receive Date: 20140930
  Receipt Date: 20140930
  Transmission Date: 20150326
  Serious: Yes (Other)
  Sender: FDA-Public Use
  Company Number: US-AMGEN-USASP2014072807

PATIENT
  Age: 67 Year
  Sex: Female

DRUGS (1)
  1. PROLIA [Suspect]
     Active Substance: DENOSUMAB
     Indication: PRODUCT USED FOR UNKNOWN INDICATION
     Dosage: UNK
     Route: 065

REACTIONS (12)
  - Flatulence [Unknown]
  - Gastrointestinal disorder [Unknown]
  - Abdominal pain lower [Unknown]
  - Diarrhoea [Unknown]
  - Red blood cell count decreased [Unknown]
  - Protein total decreased [Unknown]
  - Haemoglobin decreased [Unknown]
  - Glycosylated haemoglobin increased [Unknown]
  - Nasopharyngitis [Unknown]
  - Asthenia [Unknown]
  - Faecal incontinence [Unknown]
  - Blood sodium increased [Unknown]

NARRATIVE: CASE EVENT DATE: 201406
